FAERS Safety Report 19593514 (Version 1)
Quarter: 2021Q3

REPORT INFORMATION
  Report Type: Spontaneous
  Country: DE (occurrence: DE)
  Receive Date: 20210722
  Receipt Date: 20210722
  Transmission Date: 20211014
  Serious: Yes (Other)
  Sender: FDA-Public Use
  Company Number: DE-ABBVIE-21K-062-4001144-00

PATIENT
  Age: 57 Year
  Sex: Male

DRUGS (7)
  1. BETAMETHASONE DIPROPIONATE. [Concomitant]
     Active Substance: BETAMETHASONE DIPROPIONATE
     Indication: PRODUCT USED FOR UNKNOWN INDICATION
     Dosage: FOAM
  2. CALCIPOTRIOL [Concomitant]
     Active Substance: CALCIPOTRIENE
     Indication: PRODUCT USED FOR UNKNOWN INDICATION
  3. ASPIRIN. [Concomitant]
     Active Substance: ASPIRIN
     Indication: PRODUCT USED FOR UNKNOWN INDICATION
  4. CANDESARTAN. [Concomitant]
     Active Substance: CANDESARTAN
     Indication: PRODUCT USED FOR UNKNOWN INDICATION
  5. INDAPAMID [Concomitant]
     Active Substance: INDAPAMIDE
     Indication: PRODUCT USED FOR UNKNOWN INDICATION
  6. SIMVASTATIN. [Concomitant]
     Active Substance: SIMVASTATIN
     Indication: PRODUCT USED FOR UNKNOWN INDICATION
  7. HUMIRA [Suspect]
     Active Substance: ADALIMUMAB
     Indication: PRODUCT USED FOR UNKNOWN INDICATION
     Route: 058
     Dates: start: 201812, end: 2020

REACTIONS (22)
  - Neutrophil count increased [Unknown]
  - Psoriasis [Unknown]
  - Hypertension [Unknown]
  - Tonsillectomy [Unknown]
  - Obesity [Unknown]
  - Conjunctivitis allergic [Unknown]
  - Umbilical hernia [Unknown]
  - Blood creatinine increased [Unknown]
  - Hyperuricaemia [Unknown]
  - Appendicectomy [Unknown]
  - Arthritis reactive [Unknown]
  - Immunoglobulins increased [Unknown]
  - Hypercholesterolaemia [Unknown]
  - Skin discharge [Unknown]
  - Skin discharge [Unknown]
  - Blood triglycerides increased [Unknown]
  - Aspartate aminotransferase increased [Unknown]
  - Skin disorder [Unknown]
  - White blood cell count increased [Unknown]
  - Liver function test increased [Unknown]
  - Gamma-glutamyltransferase increased [Unknown]
  - Asthma [Unknown]

NARRATIVE: CASE EVENT DATE: 2021
